FAERS Safety Report 6999892-1 (Version None)
Quarter: 2010Q3

REPORT INFORMATION
  Report Type: 
  Country: None (occurrence: None)
  Receive Date: 20100920
  Receipt Date: 20100302
  Transmission Date: 20110219
  Serious: Yes (Other)
  Sender: FDA-Public Use
  Company Number: US-ASTRAZENECA-2009UW20954

PATIENT
  Age: 16048 Day
  Sex: Male
  Weight: 65.8 kg

DRUGS (5)
  1. SEROQUEL [Suspect]
     Dosage: 125-650MG
     Route: 048
     Dates: start: 20030112
  2. SEROQUEL [Suspect]
     Route: 048
     Dates: start: 20050822
  3. TRILEPTAL [Concomitant]
     Dates: start: 20050425
  4. ABILIFY [Concomitant]
     Dates: start: 20041214
  5. CYMBALTA [Concomitant]
     Dates: start: 20050822

REACTIONS (3)
  - DIABETES MELLITUS [None]
  - KETOACIDOSIS [None]
  - PANCREATITIS [None]
